FAERS Safety Report 21089259 (Version 1)
Quarter: 2022Q3

REPORT INFORMATION
  Report Type: Spontaneous
  Country: CA (occurrence: CA)
  Receive Date: 20220715
  Receipt Date: 20220715
  Transmission Date: 20221026
  Serious: Yes (Death, Other)
  Sender: FDA-Public Use
  Company Number: CA-PFIZER INC-2020318797

PATIENT
  Age: 45 Year
  Sex: Female
  Weight: 59.8 kg

DRUGS (23)
  1. IBRANCE [Suspect]
     Active Substance: PALBOCICLIB
     Indication: Breast cancer metastatic
     Dosage: 100 MG, CYCLIC (TAKE 1 CAP BY MOUTH ONCE DAILY FOR 21 DAYS IN A ROW. STOP FOR 7 DAYS)
     Route: 048
     Dates: start: 20201006
  2. IBRANCE [Suspect]
     Active Substance: PALBOCICLIB
     Dosage: 125 MG, DAILY (FOR 21 DAYS )
     Route: 048
  3. LETROZOLE [Concomitant]
     Active Substance: LETROZOLE
     Indication: Breast cancer metastatic
     Dosage: UNK
     Dates: start: 202004, end: 202107
  4. ZOLADEX [Concomitant]
     Active Substance: GOSERELIN ACETATE
     Indication: Breast cancer metastatic
     Dosage: UNK
     Dates: start: 202004
  5. MELATONIN [Concomitant]
     Active Substance: MELATONIN
     Dosage: UNK
  6. THERACURMIN BIOACTIVE [Concomitant]
     Dosage: UNK
  7. VITAMIN D3 [Concomitant]
     Active Substance: CHOLECALCIFEROL
     Dosage: UNK
  8. VITAMIN B-COMPLEX [Concomitant]
     Active Substance: DEXPANTHENOL\NIACINAMIDE\PYRIDOXINE HYDROCHLORIDE\RIBOFLAVIN 5^-PHOSPHATE SODIUM\THIAMINE HYDROCHLOR
     Dosage: UNK
  9. CALCIUM CITRATE [Concomitant]
     Active Substance: CALCIUM CITRATE
     Dosage: UNK
  10. HONOPURE [Concomitant]
     Dosage: UNK
  11. QUERCETIN [Concomitant]
     Active Substance: QUERCETIN
     Dosage: UNK
  12. KELP [IODINE] [Concomitant]
     Dosage: UNK
  13. BERBERINE [Concomitant]
     Active Substance: BERBERINE
     Dosage: UNK
  14. GREEN TEA EXTRACT [Concomitant]
     Dosage: UNK
  15. ELLAGIC ACID [Concomitant]
     Active Substance: ELLAGIC ACID
     Dosage: UNK
  16. ALPHA LIPOIC ACID [Concomitant]
     Active Substance: .ALPHA.-LIPOIC ACID
     Dosage: UNK
  17. COENZYME Q10 [Concomitant]
     Active Substance: DIETARY SUPPLEMENT\UBIDECARENONE
     Dosage: UNK
  18. I3C (INDOLE 3 CARBINOL) [Concomitant]
     Dosage: UNK
  19. TAMOXIFEN [Concomitant]
     Active Substance: TAMOXIFEN
     Indication: Breast cancer metastatic
     Dosage: UNK
     Dates: start: 201906
  20. FASLODEX [Concomitant]
     Active Substance: FULVESTRANT
     Dosage: 500 MG, ONCE, ON DAY 1,15,29
     Route: 030
  21. FASLODEX [Concomitant]
     Active Substance: FULVESTRANT
     Dosage: 500 MG, ON DAY 1 Q28D (EVERY 28 DAYS)
     Route: 030
  22. PROCHLORPERAZINE [Concomitant]
     Active Substance: PROCHLORPERAZINE
     Indication: Nausea
     Dosage: 10 MG, Q4-6 HR, PRN
     Route: 048
  23. PROCHLORPERAZINE [Concomitant]
     Active Substance: PROCHLORPERAZINE
     Indication: Vomiting

REACTIONS (3)
  - Neoplasm progression [Fatal]
  - Oophorectomy bilateral [Unknown]
  - Body surface area increased [Unknown]
